FAERS Safety Report 5776840-3 (Version None)
Quarter: 2008Q2

REPORT INFORMATION
  Report Type: 
  Country: None (occurrence: None)
  Receive Date: 20080618
  Receipt Date: 20080611
  Transmission Date: 20081010
  Serious: Yes (Hospitalization)
  Sender: FDA-Public Use
  Company Number: CH-WATSON-2008-03566

PATIENT
  Age: 84 Year
  Sex: Female

DRUGS (3)
  1. FIORICET [Suspect]
     Indication: PAIN
     Dosage: 4 G, DAILY
     Route: 065
     Dates: start: 20070101
  2. METOPROLOL [Concomitant]
     Indication: CORONARY ARTERY DISEASE
     Dosage: 50 MG, DAILY
     Route: 065
     Dates: start: 20070101
  3. ASPIRIN [Concomitant]
     Indication: CORONARY ARTERY DISEASE
     Dosage: 100 MG, DAILY
     Route: 065
     Dates: start: 20070101

REACTIONS (3)
  - ACUTE HEPATIC FAILURE [None]
  - ALCOHOL INTERACTION [None]
  - DRUG INTERACTION [None]
